FAERS Safety Report 12804179 (Version 2)
Quarter: 2016Q4

REPORT INFORMATION
  Report Type: Spontaneous
  Country: US (occurrence: US)
  Receive Date: 20161003
  Receipt Date: 20161117
  Transmission Date: 20170207
  Serious: No
  Sender: FDA-Public Use
  Company Number: US-ASTRAZENECA-2016SF00721

PATIENT
  Age: 86 Year
  Sex: Female
  Weight: 52.6 kg

DRUGS (2)
  1. LEVOTHROXINE [Concomitant]
     Active Substance: LEVOTHYROXINE
     Indication: THYROID DISORDER
     Route: 048
     Dates: start: 2011
  2. SYMBICORT [Suspect]
     Active Substance: BUDESONIDE\FORMOTEROL FUMARATE DIHYDRATE
     Indication: BRONCHITIS
     Dosage: 160/4.5 MCG 120 INHALATIONS
     Route: 055
     Dates: start: 20160912

REACTIONS (6)
  - Weight decreased [Unknown]
  - Product label issue [Unknown]
  - Device malfunction [Unknown]
  - Off label use [Unknown]
  - Drug dose omission [Unknown]
  - Intentional product misuse [Unknown]

NARRATIVE: CASE EVENT DATE: 20160912
